FAERS Safety Report 7515864-2 (Version None)
Quarter: 2011Q2

REPORT INFORMATION
  Report Type: 
  Country: None (occurrence: None)
  Receive Date: 20110526
  Receipt Date: 20110526
  Transmission Date: 20111010
  Serious: No
  Sender: FDA-Public Use
  Company Number: None

PATIENT
  Age: 70 Year
  Sex: Female

DRUGS (3)
  1. PREMARIN [Concomitant]
  2. REVLIMID [Suspect]
     Indication: MULTIPLE MYELOMA
     Dosage: 5MG QDX14D/28D ORALLY
     Route: 048
     Dates: start: 20100301, end: 20110501
  3. NORVASC [Concomitant]

REACTIONS (1)
  - NEUTROPENIA [None]
